FAERS Safety Report 13640311 (Version 2)
Quarter: 2017Q2

REPORT INFORMATION
  Report Type: Spontaneous
  Country: DE (occurrence: DE)
  Receive Date: 20170610
  Receipt Date: 20170630
  Transmission Date: 20170830
  Serious: Yes (Hospitalization, Other)
  Sender: FDA-Public Use
  Company Number: DE-TORRENT-00006586

PATIENT
  Age: 55 Year
  Sex: Female

DRUGS (4)
  1. ZYPADHERA [Interacting]
     Active Substance: OLANZAPINE PAMOATE
  2. VALPROATE SODIUM. [Suspect]
     Active Substance: VALPROATE SODIUM
  3. ASENAPINE MALEATE [Interacting]
     Active Substance: ASENAPINE MALEATE
  4. OLANZAPINE. [Interacting]
     Active Substance: OLANZAPINE

REACTIONS (2)
  - Overdose [Unknown]
  - Parkinsonism [Recovering/Resolving]

NARRATIVE: CASE EVENT DATE: 20161101
